FAERS Safety Report 10416000 (Version 1)
Quarter: 2014Q3

REPORT INFORMATION
  Report Type: Spontaneous
  Country: JP (occurrence: JP)
  Receive Date: 20140828
  Receipt Date: 20140828
  Transmission Date: 20150326
  Serious: Yes (Other)
  Sender: FDA-Public Use
  Company Number: CHPA2014JP011151

PATIENT
  Age: 58 Year
  Sex: Male

DRUGS (1)
  1. NICOTINE GUM [Suspect]
     Active Substance: NICOTINE
     Route: 048

REACTIONS (3)
  - Incorrect drug administration duration [Unknown]
  - Stomatitis [Recovering/Resolving]
  - Mouth ulceration [Recovering/Resolving]
